FAERS Safety Report 8474121-0 (Version None)
Quarter: 2012Q2

REPORT INFORMATION
  Report Type: 
  Country: None (occurrence: None)
  Receive Date: 20120628
  Receipt Date: 20120620
  Transmission Date: 20120825
  Serious: No
  Sender: FDA-Public Use
  Company Number: US-PFIZER INC-2012148671

PATIENT
  Sex: Female

DRUGS (3)
  1. LYRICA [Suspect]
     Dosage: 100 MG, 3X/DAY
  2. LYRICA [Suspect]
     Dosage: 75 MG, 3X/DAY
  3. LYRICA [Suspect]
     Dosage: 50 MG, 3X/DAY

REACTIONS (1)
  - MUSCULAR WEAKNESS [None]
